FAERS Safety Report 5256408-8 (Version None)
Quarter: 2007Q1

REPORT INFORMATION
  Report Type: 
  Country: None (occurrence: None)
  Receive Date: 20070306
  Receipt Date: 20070223
  Transmission Date: 20070707
  Serious: Yes (Other)
  Sender: FDA-Public Use
  Company Number: CA-ROCHE-484287

PATIENT
  Age: 49 Year
  Sex: Female

DRUGS (6)
  1. XENICAL [Suspect]
     Indication: WEIGHT CONTROL
     Route: 048
     Dates: start: 20070206
  2. RIVOTRIL [Concomitant]
     Indication: ANXIETY
     Route: 048
     Dates: start: 19820615
  3. CELEXA [Concomitant]
     Indication: DEPRESSION
     Route: 048
     Dates: start: 19970615
  4. LIPITOR [Concomitant]
     Route: 048
     Dates: start: 20050615
  5. 1 CONCOMITANT DRUG [Concomitant]
     Dosage: DRUG NAME REPORTED AS RIVARSA.
     Route: 048
     Dates: start: 20050615
  6. LASIX [Concomitant]
     Route: 048
     Dates: start: 19970615

REACTIONS (1)
  - MELAENA [None]
